FAERS Safety Report 22092595 (Version 2)
Quarter: 2023Q2

REPORT INFORMATION
  Report Type: Spontaneous
  Country: US (occurrence: None)
  Receive Date: 20230314
  Receipt Date: 20230425
  Transmission Date: 20230722
  Serious: Yes (Hospitalization, Other)
  Sender: FDA-Public Use
  Company Number: 2023A055529

PATIENT
  Age: 63 Year
  Sex: Female
  Weight: 95.3 kg

DRUGS (7)
  1. FASENRA [Suspect]
     Active Substance: BENRALIZUMAB
     Indication: Asthma
     Route: 058
     Dates: start: 201808
  2. CRESTOR [Suspect]
     Active Substance: ROSUVASTATIN CALCIUM
     Route: 048
  3. ALLEGRA [Concomitant]
     Active Substance: FEXOFENADINE HYDROCHLORIDE
     Route: 048
  4. ZYRTEC [Concomitant]
     Active Substance: CETIRIZINE HYDROCHLORIDE
     Route: 048
  5. SINGULAIR [Concomitant]
     Active Substance: MONTELUKAST SODIUM
     Indication: Asthma
     Route: 048
  6. PREDNISONE [Concomitant]
     Active Substance: PREDNISONE
     Indication: Asthma
     Route: 048
  7. ASPIRIN [Concomitant]
     Active Substance: ASPIRIN
     Indication: Vascular stent insertion
     Route: 048

REACTIONS (8)
  - Diverticulitis [Unknown]
  - Fall [Unknown]
  - Upper limb fracture [Unknown]
  - Sneezing [Recovered/Resolved]
  - Gastrooesophageal reflux disease [Unknown]
  - Wheezing [Recovered/Resolved]
  - Myalgia [Unknown]
  - Urticaria [Unknown]

NARRATIVE: CASE EVENT DATE: 20220101
